FAERS Safety Report 8620706-8 (Version None)
Quarter: 2012Q3

REPORT INFORMATION
  Report Type: 
  Country: None (occurrence: None)
  Receive Date: 20120824
  Receipt Date: 20120813
  Transmission Date: 20120928
  Serious: Yes (Other)
  Sender: FDA-Public Use
  Company Number: FR-FRI-1000038117

PATIENT
  Sex: Female

DRUGS (6)
  1. ESCITALOPRAM [Suspect]
     Dosage: 5 MG
     Route: 048
     Dates: start: 20120425, end: 20120518
  2. ESCITALOPRAM [Suspect]
     Route: 048
     Dates: start: 20120720
  3. ESCITALOPRAM [Suspect]
     Indication: DEPRESSION
     Dosage: 10 MG
     Route: 048
     Dates: start: 20060327, end: 20120424
  4. ZOLPIDEM [Concomitant]
     Dosage: NOT REGULAR INTAKE
     Route: 048
     Dates: start: 20040101
  5. XANAX [Concomitant]
     Indication: ANXIETY
     Dosage: 3 DF
     Route: 048
     Dates: start: 20090817
  6. TRIMEPRAZINE TARTRATE [Concomitant]
     Indication: INSOMNIA
     Dosage: 15 TO 20 DROPS
     Route: 048
     Dates: start: 20111212

REACTIONS (1)
  - WITHDRAWAL SYNDROME [None]
